FAERS Safety Report 16845642 (Version 2)
Quarter: 2019Q4

REPORT INFORMATION
  Report Type: Spontaneous
  Country: JP (occurrence: JP)
  Receive Date: 20190924
  Receipt Date: 20191014
  Transmission Date: 20200122
  Serious: Yes (Hospitalization, Other)
  Sender: FDA-Public Use
  Company Number: JP-SAKK-2019SA261777AA

PATIENT
  Age: 68 Year
  Sex: Female
  Weight: 40 kg

DRUGS (5)
  1. SULFASALAZINE. [Concomitant]
     Active Substance: SULFASALAZINE
     Indication: PRODUCT USED FOR UNKNOWN INDICATION
     Dosage: 1000MG IN 2 DIVIDED DOSES AFTER BREAKFAST AND DINNER
     Route: 048
  2. BUCILLAMINE [Concomitant]
     Active Substance: BUCILLAMINE
     Indication: PRODUCT USED FOR UNKNOWN INDICATION
     Dosage: 200MG IN 2 DIVIDED DOSES AFTER BREAKFAST AND DINNER
     Route: 065
  3. INSULIN LISPRO [Concomitant]
     Active Substance: INSULIN LISPRO
     Indication: TYPE 1 DIABETES MELLITUS
     Dosage: 5-7-7 UNITS
     Route: 065
  4. LANTUS SOLOSTAR [Suspect]
     Active Substance: INSULIN GLARGINE
     Indication: TYPE 1 DIABETES MELLITUS
     Dosage: 4 UNITS BEFORE SLEEP
     Route: 058
  5. CELECOXIB. [Concomitant]
     Active Substance: CELECOXIB
     Indication: PRODUCT USED FOR UNKNOWN INDICATION
     Dosage: 200 MG DAILY AFTER BREAKFAST
     Route: 065

REACTIONS (6)
  - Decreased appetite [Unknown]
  - Physical deconditioning [Unknown]
  - Polyuria [Unknown]
  - Vomiting [Unknown]
  - Depressed level of consciousness [Unknown]
  - Polydipsia [Unknown]

NARRATIVE: CASE EVENT DATE: 20160119
